FAERS Safety Report 6119916-3 (Version None)
Quarter: 2009Q1

REPORT INFORMATION
  Report Type: 
  Country: None (occurrence: None)
  Receive Date: 20090316
  Receipt Date: 20090304
  Transmission Date: 20090719
  Serious: Yes (Hospitalization)
  Sender: FDA-Public Use
  Company Number: PHHY2009SE07881

PATIENT
  Sex: Male

DRUGS (2)
  1. DIOVAN [Suspect]
     Indication: HYPERTENSION
     Dosage: UNK
     Dates: start: 20081208, end: 20090101
  2. VERAPAMIL [Suspect]

REACTIONS (7)
  - ATRIAL FIBRILLATION [None]
  - ATRIAL FLUTTER [None]
  - CARDIOVASCULAR DISORDER [None]
  - HAEMATURIA [None]
  - RENAL FAILURE [None]
  - URINARY TRACT INFECTION [None]
  - URTICARIA [None]
